FAERS Safety Report 7830207-2 (Version None)
Quarter: 2011Q4

REPORT INFORMATION
  Report Type: 
  Country: None (occurrence: None)
  Receive Date: 20111021
  Receipt Date: 20111011
  Transmission Date: 20120403
  Serious: Yes (Other)
  Sender: FDA-Public Use
  Company Number: PHHY2011CA88784

PATIENT
  Sex: Male

DRUGS (5)
  1. CYCLOPHOSPHAMIDE [Concomitant]
  2. DEXAMETHASONE [Concomitant]
  3. CLOZARIL [Suspect]
     Indication: SCHIZOPHRENIA
     Dosage: 300 MG, UNK
     Route: 048
     Dates: start: 20010405
  4. CLONAZEPAM [Concomitant]
  5. PREDNISONE [Concomitant]

REACTIONS (2)
  - NEOPLASM MALIGNANT [None]
  - AGRANULOCYTOSIS [None]
